FAERS Safety Report 6265199-3 (Version None)
Quarter: 2009Q3

REPORT INFORMATION
  Report Type: 
  Country: None (occurrence: None)
  Receive Date: 20090709
  Receipt Date: 20090709
  Transmission Date: 20100115
  Serious: Yes (Other)
  Sender: FDA-Public Use
  Company Number: None

PATIENT
  Age: 53 Year
  Sex: Male
  Weight: 63.5036 kg

DRUGS (1)
  1. BENZONATATE [Suspect]
     Indication: COUGH
     Dosage: 1 OR 2 CAPS BY MOUTH - 4 TO 6 HOURS AS NEEDED FOR COUGH ONLY 1 TIME

REACTIONS (5)
  - CHOKING [None]
  - DYSPHAGIA [None]
  - DYSPNOEA [None]
  - FEAR [None]
  - THROAT TIGHTNESS [None]
